FAERS Safety Report 25846021 (Version 1)
Quarter: 2025Q3

REPORT INFORMATION
  Report Type: Spontaneous
  Country: US (occurrence: None)
  Receive Date: 20250924
  Receipt Date: 20250924
  Transmission Date: 20251020
  Serious: Yes (Other)
  Sender: FDA-CTU
  Company Number: None

PATIENT
  Age: 47 Year
  Sex: Female
  Weight: 58.5 kg

DRUGS (1)
  1. MOUNJARO [Suspect]
     Active Substance: TIRZEPATIDE
     Indication: Weight decreased
     Dates: start: 20220820, end: 20250526

REACTIONS (4)
  - Anxiety [None]
  - Panic attack [None]
  - Agoraphobia [None]
  - Suicidal ideation [None]

NARRATIVE: CASE EVENT DATE: 20250526
